FAERS Safety Report 8056855-5 (Version None)
Quarter: 2012Q1

REPORT INFORMATION
  Report Type: 
  Country: None (occurrence: None)
  Receive Date: 20120119
  Receipt Date: 20110706
  Transmission Date: 20120608
  Serious: No
  Sender: FDA-Public Use
  Company Number: US-SANOFI-AVENTIS-2011SA044839

PATIENT
  Sex: Male

DRUGS (7)
  1. LASIX [Suspect]
     Route: 065
  2. MEDROL [Suspect]
     Route: 065
  3. CARAFATE [Suspect]
     Route: 065
  4. DALMANE [Suspect]
     Route: 065
  5. ATROPINE [Suspect]
     Route: 065
  6. FELDENE [Suspect]
     Route: 065
  7. CODEINE SUL TAB [Suspect]
     Route: 065

REACTIONS (6)
  - HEADACHE [None]
  - ASTHENIA [None]
  - VISION BLURRED [None]
  - GAIT DISTURBANCE [None]
  - FEELING ABNORMAL [None]
  - TREMOR [None]
